FAERS Safety Report 6701417-2 (Version None)
Quarter: 2010Q2

REPORT INFORMATION
  Report Type: 
  Country: None (occurrence: None)
  Receive Date: 20100429
  Receipt Date: 20100416
  Transmission Date: 20101027
  Serious: Yes (Life-Threatening)
  Sender: FDA-Public Use
  Company Number: GB-RANBAXY-2010RR-33339

PATIENT
  Sex: Male

DRUGS (3)
  1. PRAVASTATIN [Suspect]
     Indication: PROPHYLAXIS
     Dosage: 20 MG, UNK
     Route: 048
     Dates: start: 20100202, end: 20100326
  2. ASPIRIN [Concomitant]
     Indication: PROPHYLAXIS
     Dosage: 75 MG, UNK
     Route: 048
     Dates: start: 20090804
  3. ZUCLOPENTHIXOL DECANOATE [Concomitant]
     Indication: SCHIZOPHRENIA
     Dosage: 500 MG, FORTNIGHT
     Route: 030
     Dates: start: 20090701

REACTIONS (4)
  - DEPRESSION [None]
  - FATIGUE [None]
  - SLEEP DISORDER [None]
  - SUICIDAL IDEATION [None]
